FAERS Safety Report 4464876-4 (Version None)
Quarter: 2004Q4

REPORT INFORMATION
  Report Type: 
  Country: None (occurrence: None)
  Receive Date: 20041004
  Receipt Date: 20031218
  Transmission Date: 20050328
  Serious: No
  Sender: FDA-Public Use
  Company Number: 356700

PATIENT
  Age: 68 Year
  Sex: Female
  Weight: 71.2 kg

DRUGS (10)
  1. COREG [Suspect]
     Indication: ILL-DEFINED DISORDER
     Route: 048
  2. TRACLEER [Suspect]
     Dosage: 62.5MG IN THE MORNING
     Route: 048
     Dates: start: 20030710, end: 20030711
  3. ZESTRIL [Suspect]
     Indication: ILL-DEFINED DISORDER
  4. SPIRONOLACTONE [Concomitant]
  5. LASIX [Concomitant]
  6. FOLIC ACID [Concomitant]
  7. PREVACID [Concomitant]
  8. PLAVIX [Concomitant]
  9. MULTI-VITAMINS [Concomitant]
  10. FUROSEMIDE [Concomitant]
     Dosage: 60MG PER DAY
     Route: 048

REACTIONS (3)
  - BLOOD PRESSURE DECREASED [None]
  - JOINT SWELLING [None]
  - OEDEMA PERIPHERAL [None]
